FAERS Safety Report 5412978-8 (Version None)
Quarter: 2007Q3

REPORT INFORMATION
  Report Type: 
  Country: None (occurrence: None)
  Receive Date: 20070809
  Receipt Date: 20070726
  Transmission Date: 20080115
  Serious: Yes (Hospitalization)
  Sender: FDA-Public Use
  Company Number: E3810-01119-CLI-JP

PATIENT
  Age: 78 Year
  Sex: Female
  Weight: 35 kg

DRUGS (5)
  1. RABEPRAZOLE SODIUM [Suspect]
     Indication: GASTRIC ULCER
     Dosage: 20 MG, 2 IN 1 D, ORAL
     Route: 048
     Dates: start: 20070710, end: 20070713
  2. RABEPRAZOLE SODIUM [Suspect]
     Indication: HELICOBACTER INFECTION
     Dosage: 20 MG, 2 IN 1 D, ORAL
     Route: 048
     Dates: start: 20070710, end: 20070713
  3. AMOXICILLIN TRIHYDRATE [Suspect]
     Indication: HELICOBACTER INFECTION
     Dosage: 1500 MG, 2 IN 1 D, ORAL
     Route: 048
     Dates: start: 20070710, end: 20070713
  4. CLARITHROMYCIN [Suspect]
     Indication: HELICOBACTER INFECTION
     Dosage: 1500 MG, 2 IN 1 D, ORAL
     Route: 048
     Dates: start: 20070710, end: 20070713
  5. MAGMITT (MAGNESIUM OXIDE) [Concomitant]

REACTIONS (1)
  - HYPERKALAEMIA [None]
